FAERS Safety Report 14987151 (Version 2)
Quarter: 2018Q2

REPORT INFORMATION
  Report Type: Report from Study
  Country: None (occurrence: CA)
  Receive Date: 20180608
  Receipt Date: 20180621
  Transmission Date: 20180711
  Serious: Yes (Other)
  Sender: FDA-Public Use
  Company Number: CA-ABBVIE-18K-028-2378085-00

PATIENT
  Age: 39 Year
  Sex: Female

DRUGS (1)
  1. HUMIRA [Suspect]
     Active Substance: ADALIMUMAB
     Indication: CROHN^S DISEASE
     Route: 058
     Dates: start: 20180212

REACTIONS (5)
  - Renal failure [Not Recovered/Not Resolved]
  - Glaucoma [Not Recovered/Not Resolved]
  - Dermatitis psoriasiform [Not Recovered/Not Resolved]
  - Glomerular filtration rate abnormal [Not Recovered/Not Resolved]
  - Blood creatinine abnormal [Unknown]

NARRATIVE: CASE EVENT DATE: 2018
